FAERS Safety Report 5884941-4 (Version None)
Quarter: 2008Q3

REPORT INFORMATION
  Report Type: 
  Country: None (occurrence: None)
  Receive Date: 20080916
  Receipt Date: 20080904
  Transmission Date: 20090109
  Serious: Yes (Death, Hospitalization)
  Sender: FDA-Public Use
  Company Number: A0747584A

PATIENT
  Age: 60 Year
  Sex: Female
  Weight: 112.3 kg

DRUGS (1)
  1. AVANDIA [Suspect]
     Dosage: 4MG TWICE PER DAY
     Route: 065
     Dates: start: 20020501

REACTIONS (8)
  - CARDIAC FAILURE [None]
  - DEATH [None]
  - DYSPNOEA [None]
  - FATIGUE [None]
  - MYOCARDIAL INFARCTION [None]
  - OEDEMA [None]
  - VISION BLURRED [None]
  - WEIGHT INCREASED [None]
